FAERS Safety Report 9593451 (Version 1)
Quarter: 2013Q3

REPORT INFORMATION
  Report Type: Spontaneous
  Country: US (occurrence: None)
  Receive Date: 20130930
  Receipt Date: 20130930
  Transmission Date: 20140515
  Serious: No
  Sender: FDA-Public Use
  Company Number: 1000045817

PATIENT
  Age: 60 Year
  Sex: Male

DRUGS (6)
  1. LINZESS [Suspect]
     Indication: CONSTIPATION
     Route: 048
     Dates: start: 201305, end: 201305
  2. TOPROL (METOPROLOL SUCCINATE) (METOPROLOL SUCCINATE) [Concomitant]
  3. ASPIRIN (ACETYLSALICYCLIC ACID) (ACETYLSALICYLIC ACID) [Concomitant]
  4. MVI (VITAMINS NOS) (VITAMINS NOS) [Concomitant]
  5. FISH OIL (FISH OIL) (FISH OIL) [Concomitant]
  6. PROBIOTIC (NOS) (PROBIOTIC (NOS))(PROBIOTIC (NOS)) [Concomitant]

REACTIONS (2)
  - Drug ineffective [None]
  - Diarrhoea [None]
